FAERS Safety Report 11704063 (Version 1)
Quarter: 2015Q4

REPORT INFORMATION
  Report Type: Spontaneous
  Country: AR (occurrence: AR)
  Receive Date: 20151106
  Receipt Date: 20151106
  Transmission Date: 20160304
  Serious: Yes (Death, Hospitalization)
  Sender: FDA-Public Use
  Company Number: AR-ASTRAZENECA-2015SF06359

PATIENT
  Age: 60 Year
  Sex: Male

DRUGS (2)
  1. CALCIO [Concomitant]
     Active Substance: CALCIUM
  2. IRESSA [Suspect]
     Active Substance: GEFITINIB
     Indication: LUNG NEOPLASM MALIGNANT
     Route: 048
     Dates: start: 20150801

REACTIONS (3)
  - Agitation [Fatal]
  - Cardiac failure [Fatal]
  - Dyspnoea [Fatal]
